FAERS Safety Report 14133278 (Version 1)
Quarter: 2017Q4

REPORT INFORMATION
  Report Type: Spontaneous
  Country: US (occurrence: US)
  Receive Date: 20171027
  Receipt Date: 20171027
  Transmission Date: 20180321
  Serious: Yes (Life-Threatening, Other)
  Sender: FDA-Public Use
  Company Number: US-STRIDES ARCOLAB LIMITED-2017SP013662

PATIENT

DRUGS (2)
  1. VANCOMYCIN [Suspect]
     Active Substance: VANCOMYCIN
     Indication: ARTHRITIS INFECTIVE
     Dosage: 1 G, UNKNOWN
     Route: 065
  2. GENTAMICIN W/POLYMETHYLMETHACRYLATE [Concomitant]
     Indication: ARTHRITIS INFECTIVE
     Dosage: 0.5 G GENTAMICIN IN 40 G METHYLMETHACRYLATE POWDER
     Route: 065

REACTIONS (1)
  - Autoimmune haemolytic anaemia [Recovered/Resolved]
